FAERS Safety Report 7515658-8 (Version None)
Quarter: 2011Q2

REPORT INFORMATION
  Report Type: 
  Country: None (occurrence: None)
  Receive Date: 20110601
  Receipt Date: 20100719
  Transmission Date: 20111010
  Serious: Yes (Other)
  Sender: FDA-Public Use
  Company Number: US-PFIZER INC-2010090776

PATIENT
  Sex: Female

DRUGS (1)
  1. CHANTIX [Suspect]
     Dosage: 4 MG, 1X/DAY
     Route: 048
     Dates: start: 20100701

REACTIONS (4)
  - ANXIETY [None]
  - DEPRESSED MOOD [None]
  - NIGHT SWEATS [None]
  - THIRST [None]
